FAERS Safety Report 24443669 (Version 2)
Quarter: 2024Q4

REPORT INFORMATION
  Report Type: Report from Study
  Country: US (occurrence: US)
  Receive Date: 20241016
  Receipt Date: 20241017
  Transmission Date: 20250115
  Serious: No
  Sender: ROCHE
  Company Number: US-ROCHE-1993614

PATIENT
  Age: 48 Year
  Sex: Female

DRUGS (4)
  1. RITUXAN [Suspect]
     Active Substance: RITUXIMAB
     Indication: Multiple sclerosis
     Dosage: DAY 1 AND DAY 15, SUBSEQUENT DOSE ON 05/JAN/2016, 20/JAN/2016, 10/AUG/2016, 24/AUG/2016, 19/JAN/2018
     Route: 042
     Dates: start: 2015
  2. TIZANIDINE [Concomitant]
     Active Substance: TIZANIDINE
     Indication: Muscle spasticity
     Route: 048
  3. LOSARTAN [Concomitant]
     Active Substance: LOSARTAN
     Indication: Blood pressure measurement
     Route: 048
  4. METOPROLOL [Concomitant]
     Active Substance: METOPROLOL
     Indication: Blood pressure measurement
     Route: 048

REACTIONS (5)
  - Off label use [Unknown]
  - Pyrexia [Unknown]
  - Hypotension [Unknown]
  - Body temperature decreased [Unknown]
  - Asthenia [Unknown]
